FAERS Safety Report 9901666 (Version 4)
Quarter: 2014Q2

REPORT INFORMATION
  Report Type: Spontaneous
  Country: US (occurrence: US)
  Receive Date: 20140217
  Receipt Date: 20140530
  Transmission Date: 20141212
  Serious: Yes (Death, Other)
  Sender: FDA-Public Use
  Company Number: PHEH2014US003169

PATIENT
  Age: 60 Year
  Sex: Female
  Weight: 73 kg

DRUGS (1)
  1. GILENYA [Suspect]
     Indication: MULTIPLE SCLEROSIS
     Dosage: 0.5 MG, QD
     Route: 048
     Dates: start: 20120410, end: 20140129

REACTIONS (4)
  - Death [Fatal]
  - Central nervous system lesion [Not Recovered/Not Resolved]
  - Neurological symptom [Not Recovered/Not Resolved]
  - Treatment failure [Unknown]
